FAERS Safety Report 22115736 (Version 1)
Quarter: 2023Q1

REPORT INFORMATION
  Report Type: Spontaneous
  Country: CA (occurrence: CA)
  Receive Date: 20230320
  Receipt Date: 20230320
  Transmission Date: 20230418
  Serious: Yes (Hospitalization, Other)
  Sender: FDA-Public Use
  Company Number: CA-ELI_LILLY_AND_COMPANY-CA202303002712

PATIENT
  Sex: Male

DRUGS (26)
  1. FLUOXETINE HYDROCHLORIDE [Interacting]
     Active Substance: FLUOXETINE HYDROCHLORIDE
     Indication: Schizoaffective disorder bipolar type
     Dosage: 60 MG, UNKNOWN
     Route: 065
  2. FLUOXETINE HYDROCHLORIDE [Interacting]
     Active Substance: FLUOXETINE HYDROCHLORIDE
     Indication: Psychotic disorder
  3. FLUOXETINE HYDROCHLORIDE [Interacting]
     Active Substance: FLUOXETINE HYDROCHLORIDE
     Indication: Obsessive-compulsive disorder
  4. BUSPIRONE [Interacting]
     Active Substance: BUSPIRONE HYDROCHLORIDE
     Indication: Schizoaffective disorder bipolar type
     Dosage: 60 MG, UNKNOWN
     Route: 065
  5. BUSPIRONE [Interacting]
     Active Substance: BUSPIRONE HYDROCHLORIDE
     Indication: Psychotic disorder
  6. BUSPIRONE [Interacting]
     Active Substance: BUSPIRONE HYDROCHLORIDE
     Indication: Obsessive-compulsive disorder
  7. CLOZAPINE [Interacting]
     Active Substance: CLOZAPINE
     Indication: Schizoaffective disorder bipolar type
     Dosage: 625 MG, DAILY
     Route: 065
  8. CLOZAPINE [Interacting]
     Active Substance: CLOZAPINE
     Indication: Psychotic disorder
     Dosage: 150 UNK
     Route: 065
  9. CLOZAPINE [Interacting]
     Active Substance: CLOZAPINE
     Indication: Obsessive-compulsive disorder
  10. DEPAKOTE [Interacting]
     Active Substance: DIVALPROEX SODIUM
     Indication: Schizoaffective disorder bipolar type
     Dosage: 1500 MG, UNKNOWN
     Route: 065
  11. DEPAKOTE [Interacting]
     Active Substance: DIVALPROEX SODIUM
     Indication: Psychotic disorder
  12. DEPAKOTE [Interacting]
     Active Substance: DIVALPROEX SODIUM
     Indication: Obsessive-compulsive disorder
  13. FLUVOXAMINE [Interacting]
     Active Substance: FLUVOXAMINE
     Indication: Schizoaffective disorder bipolar type
     Dosage: 200 MG, DAILY
     Route: 065
  14. FLUVOXAMINE [Interacting]
     Active Substance: FLUVOXAMINE
     Indication: Psychotic disorder
     Dosage: UNK, UNKNOWN
     Route: 065
  15. FLUVOXAMINE [Interacting]
     Active Substance: FLUVOXAMINE
     Indication: Obsessive-compulsive disorder
  16. OXAZEPAM [Interacting]
     Active Substance: OXAZEPAM
     Indication: Schizoaffective disorder bipolar type
     Dosage: 20 MG, UNKNOWN
     Route: 065
  17. OXAZEPAM [Interacting]
     Active Substance: OXAZEPAM
     Indication: Psychotic disorder
  18. PROCYCLIDINE [Interacting]
     Active Substance: PROCYCLIDINE
     Indication: Schizoaffective disorder bipolar type
     Dosage: UNK, UNKNOWN
     Route: 065
  19. PROCYCLIDINE [Interacting]
     Active Substance: PROCYCLIDINE
     Indication: Psychotic disorder
  20. PROCYCLIDINE [Interacting]
     Active Substance: PROCYCLIDINE
     Indication: Obsessive-compulsive disorder
  21. ZOPICLONE [Interacting]
     Active Substance: ZOPICLONE
     Indication: Schizoaffective disorder bipolar type
     Dosage: UNK, UNKNOWN
     Route: 065
  22. ZOPICLONE [Interacting]
     Active Substance: ZOPICLONE
     Indication: Psychotic disorder
  23. ZOPICLONE [Interacting]
     Active Substance: ZOPICLONE
     Indication: Obsessive-compulsive disorder
  24. ZUCLOPENTHIXOL DECANOATE [Interacting]
     Active Substance: ZUCLOPENTHIXOL DECANOATE
     Indication: Schizoaffective disorder bipolar type
     Dosage: 450 MG, WEEKLY (1/W)
     Route: 065
  25. ZUCLOPENTHIXOL DECANOATE [Interacting]
     Active Substance: ZUCLOPENTHIXOL DECANOATE
     Indication: Psychotic disorder
  26. ZUCLOPENTHIXOL DECANOATE [Interacting]
     Active Substance: ZUCLOPENTHIXOL DECANOATE
     Indication: Obsessive-compulsive disorder

REACTIONS (11)
  - Delirium [Unknown]
  - Obesity [Unknown]
  - Condition aggravated [Unknown]
  - Antipsychotic drug level increased [Unknown]
  - Disorientation [Unknown]
  - Aggression [Unknown]
  - Drug interaction [Unknown]
  - Irritability [Unknown]
  - Orthostatic hypotension [Unknown]
  - Sedation [Unknown]
  - Tardive dyskinesia [Unknown]
